FAERS Safety Report 6550560-X (Version None)
Quarter: 2010Q1

REPORT INFORMATION
  Report Type: 
  Country: None (occurrence: None)
  Receive Date: 20100125
  Receipt Date: 20100120
  Transmission Date: 20100710
  Serious: Yes (Other)
  Sender: FDA-Public Use
  Company Number: CA-PFIZER INC-2010007901

PATIENT
  Age: 46 Year
  Sex: Female

DRUGS (11)
  1. CHAMPIX [Suspect]
     Indication: SMOKING CESSATION THERAPY
     Dosage: UNK
     Dates: start: 20091124, end: 20100111
  2. METFORMIN [Concomitant]
     Dosage: UNK
  3. HUMULIN N [Concomitant]
     Dosage: UNK
  4. ESTRACE [Concomitant]
     Dosage: UNK
  5. MULTI-VITAMINS [Concomitant]
     Dosage: UNK
  6. CRESTOR [Concomitant]
     Dosage: UNK
  7. ALTACE [Concomitant]
     Dosage: UNK
  8. OMEPRAZOLE [Concomitant]
     Dosage: UNK
  9. CITALOPRAM [Concomitant]
     Dosage: UNK
  10. CLONAZEPAM [Concomitant]
     Dosage: UNK
  11. WELLBUTRIN [Concomitant]
     Dosage: UNK

REACTIONS (4)
  - AGGRESSION [None]
  - ROAD TRAFFIC ACCIDENT [None]
  - STRESS [None]
  - SUICIDAL IDEATION [None]
